FAERS Safety Report 7447064-9 (Version None)
Quarter: 2011Q2

REPORT INFORMATION
  Report Type: 
  Country: None (occurrence: None)
  Receive Date: 20110429
  Receipt Date: 20110421
  Transmission Date: 20111010
  Serious: Yes (Other)
  Sender: FDA-Public Use
  Company Number: IT-BAXTER-2011BH012544

PATIENT
  Age: 14 Year
  Sex: Male

DRUGS (2)
  1. HOLOXAN BAXTER [Suspect]
     Indication: EWING'S SARCOMA
     Route: 042
     Dates: start: 20110419, end: 20110421
  2. VINCRISTINE [Concomitant]
     Indication: PRODUCT USED FOR UNKNOWN INDICATION
     Route: 042

REACTIONS (1)
  - THROAT TIGHTNESS [None]
